FAERS Safety Report 9669920 (Version 1)
Quarter: 2013Q4

REPORT INFORMATION
  Report Type: Spontaneous
  Country: US (occurrence: None)
  Receive Date: 20131104
  Receipt Date: 20131104
  Transmission Date: 20140711
  Serious: Yes (Hospitalization)
  Sender: FDA-Public Use
  Company Number: AUR-APL-2013-09110

PATIENT
  Age: 16 Year
  Sex: Female

DRUGS (3)
  1. ESCITALOPRAM (ESCITALOPRAM) [Suspect]
     Indication: DEPRESSION
     Route: 048
  2. TRAMADOL/PARACETAMOL [Suspect]
     Indication: PRODUCT USED FOR UNKNOWN INDICATION
  3. HYDROCODONE/PARACETAMOL [Suspect]
     Indication: PRODUCT USED FOR UNKNOWN INDICATION
     Route: 048

REACTIONS (9)
  - Electrocardiogram QRS complex prolonged [None]
  - Electrocardiogram QT prolonged [None]
  - Bundle branch block right [None]
  - Intentional overdose [None]
  - Vomiting [None]
  - Lethargy [None]
  - Laceration [None]
  - Presyncope [None]
  - Blood pressure decreased [None]
